FAERS Safety Report 12111469 (Version 1)
Quarter: 2016Q1

REPORT INFORMATION
  Report Type: Spontaneous
  Country: US (occurrence: US)
  Receive Date: 20160224
  Receipt Date: 20160224
  Transmission Date: 20160526
  Serious: No
  Sender: FDA-Public Use
  Company Number: US-009507513-1602USA005483

PATIENT
  Age: 18 Year
  Sex: Female
  Weight: 71.66 kg

DRUGS (1)
  1. NEXPLANON [Suspect]
     Active Substance: ETONOGESTREL
     Indication: CONTRACEPTION
     Dosage: EVERY 3 YEARS, RIGHT ARM IMPLANT
     Route: 059
     Dates: start: 20150305

REACTIONS (2)
  - Haemorrhage [Unknown]
  - Cyst removal [Unknown]

NARRATIVE: CASE EVENT DATE: 201511
